FAERS Safety Report 16023358 (Version 2)
Quarter: 2019Q1

REPORT INFORMATION
  Report Type: Spontaneous
  Country: IT (occurrence: IT)
  Receive Date: 20190301
  Receipt Date: 20190327
  Transmission Date: 20190418
  Serious: Yes (Other)
  Sender: FDA-Public Use
  Company Number: IT-PFIZER INC-2019086622

PATIENT
  Sex: Female

DRUGS (2)
  1. PACLITAXEL. [Suspect]
     Active Substance: PACLITAXEL
     Indication: OVARIAN CANCER
     Dosage: 290 MG, CYCLIC
     Route: 042
     Dates: start: 20180801, end: 20181101
  2. CARBOPLATIN. [Suspect]
     Active Substance: CARBOPLATIN
     Indication: OVARIAN CANCER
     Dosage: 600 MG, CYCLIC
     Route: 042
     Dates: start: 20180801, end: 20181101

REACTIONS (1)
  - Hair disorder [Recovered/Resolved]

NARRATIVE: CASE EVENT DATE: 20180901
